FAERS Safety Report 4744614-8 (Version None)
Quarter: 2005Q3

REPORT INFORMATION
  Report Type: 
  Country: None (occurrence: None)
  Receive Date: 20050809
  Receipt Date: 20040806
  Transmission Date: 20060218
  Serious: Yes (Death, Life-Threatening)
  Sender: FDA-Public Use
  Company Number: 04R-163-0271573-00

PATIENT
  Age: 1 Day
  Sex: Female
  Weight: 0.624 kg

DRUGS (8)
  1. SURVANTA [Suspect]
     Indication: RESPIRATORY DISTRESS
     Dates: start: 20030902, end: 20030902
  2. AMPICILLIN (AMPICILLIN) (AMPICILLIN) [Concomitant]
  3. GENTAMICIN SULFATE (GENTAMICIN SULFATE)(GENTAMICIN SULFATE) [Concomitant]
  4. FENTANYL CITRATE (FENTANYL CITRATE) (FENTANYL CITRATE) [Concomitant]
  5. MIDAZOLAM HYDROCHLORIDE (MIDAZOLAM HYDROCHLORIDE) (MIDAZOLAM HYDROCHLO [Concomitant]
  6. GLUCOSE [Concomitant]
  7. CALCIUM GLUCONATE [Concomitant]
  8. SODIUM CHLORIDE [Concomitant]

REACTIONS (3)
  - DEATH [None]
  - NEONATAL RESPIRATORY FAILURE [None]
  - SEPSIS [None]
